FAERS Safety Report 14326244 (Version 1)
Quarter: 2017Q4

REPORT INFORMATION
  Report Type: Report from Study
  Country: DE (occurrence: DE)
  Receive Date: 20171227
  Receipt Date: 20171227
  Transmission Date: 20180321
  Serious: Yes (Death, Hospitalization, Other)
  Sender: FDA-Public Use
  Company Number: DE-ROCHE-1888086

PATIENT
  Age: 60 Year
  Sex: Female
  Weight: 66 kg

DRUGS (4)
  1. OBINUTUZUMAB. [Suspect]
     Active Substance: OBINUTUZUMAB
     Indication: LYMPHOMA TRANSFORMATION
  2. PIXANTRONE [Suspect]
     Active Substance: PIXANTRONE
     Indication: LYMPHOMA TRANSFORMATION
  3. PIXANTRONE [Suspect]
     Active Substance: PIXANTRONE
     Indication: DIFFUSE LARGE B-CELL LYMPHOMA REFRACTORY
     Dosage: LAST DOSE BEFORE ONSET OF EVENT WAS ON 19/JAN/2017 (84.5 MG)
     Route: 042
     Dates: start: 20170119
  4. OBINUTUZUMAB. [Suspect]
     Active Substance: OBINUTUZUMAB
     Indication: DIFFUSE LARGE B-CELL LYMPHOMA REFRACTORY
     Dosage: LAST INTAKE BEFORE ONSET OF EVENT WAS ON 20/JAN/2017. TOTAL DOSE AT LAST INTAKE BEFORE EVENT WAS 900
     Route: 042
     Dates: start: 20170119

REACTIONS (4)
  - Sepsis [Unknown]
  - Urosepsis [Fatal]
  - Acute kidney injury [Recovered/Resolved]
  - Infection [Not Recovered/Not Resolved]

NARRATIVE: CASE EVENT DATE: 20170126
